FAERS Safety Report 25161036 (Version 2)
Quarter: 2025Q2

REPORT INFORMATION
  Report Type: Report from Study
  Country: US (occurrence: US)
  Receive Date: 20250404
  Receipt Date: 20250429
  Transmission Date: 20250717
  Serious: No
  Sender: BIOGEN
  Company Number: US-BIOGEN-2025BI01305941

PATIENT
  Sex: Female

DRUGS (1)
  1. ZURZUVAE [Suspect]
     Active Substance: ZURANOLONE
     Indication: Perinatal depression
     Dosage: TAKE 2 CAPSULES (50MG) IN THE EVENING WITH FAT-CONTAINING FOOD ONCE A DAY FOR 14 DAYS
     Route: 050
     Dates: start: 20250325, end: 20250326

REACTIONS (1)
  - Somnolence [Unknown]
